FAERS Safety Report 25914527 (Version 1)
Quarter: 2025Q4

REPORT INFORMATION
  Report Type: Spontaneous
  Country: CA (occurrence: CA)
  Receive Date: 20251013
  Receipt Date: 20251013
  Transmission Date: 20260118
  Serious: Yes (Death)
  Sender: AMGEN
  Company Number: CA-AMGEN-CANSP2025201555

PATIENT
  Age: 10 Year
  Sex: Male

DRUGS (2)
  1. BEVACIZUMAB [Suspect]
     Active Substance: BEVACIZUMAB
     Indication: Brain stem glioma
     Dosage: UNK
     Route: 065
  2. ACETAZOLAMIDE [Concomitant]
     Active Substance: ACETAZOLAMIDE
     Indication: Brain stem glioma
     Dosage: UNK
     Route: 065

REACTIONS (4)
  - Neurological decompensation [Fatal]
  - Respiratory failure [Fatal]
  - Aspiration [Fatal]
  - Off label use [Unknown]
